FAERS Safety Report 11950687 (Version 8)
Quarter: 2016Q4

REPORT INFORMATION
  Report Type: Spontaneous
  Country: US (occurrence: US)
  Receive Date: 20160126
  Receipt Date: 20161103
  Transmission Date: 20170206
  Serious: Yes (Death)
  Sender: FDA-Public Use
  Company Number: US-PFIZER INC-2016018611

PATIENT
  Age: 56 Year
  Sex: Female

DRUGS (3)
  1. LETROZOLE. [Suspect]
     Active Substance: LETROZOLE
     Indication: BREAST CANCER METASTATIC
     Dosage: UNK, 3 WEEKS ON 1 WEEK OFF
     Dates: start: 20160104
  2. IBRANCE [Suspect]
     Active Substance: PALBOCICLIB
     Indication: BREAST CANCER METASTATIC
     Dosage: 125 MG, ONCE DAILY FOR 3 WEEKS ON 1 WEEK OFF
     Dates: start: 20160104, end: 20160531
  3. LETROZOLE. [Suspect]
     Active Substance: LETROZOLE
     Dosage: UNK; (3 WEEKS ON 1 WEEK OFF)
     Dates: start: 201601, end: 20160531

REACTIONS (14)
  - Death [Fatal]
  - Madarosis [Unknown]
  - Malaise [Unknown]
  - Feeling abnormal [Unknown]
  - Hot flush [Unknown]
  - Nasopharyngitis [Not Recovered/Not Resolved]
  - Breast cancer [Unknown]
  - Abdominal discomfort [Unknown]
  - White blood cell count decreased [Unknown]
  - Cognitive disorder [Unknown]
  - Neoplasm progression [Unknown]
  - Memory impairment [Unknown]
  - Alopecia [Unknown]
  - Hypokinesia [Unknown]
